FAERS Safety Report 10236388 (Version 1)
Quarter: 2014Q1

REPORT INFORMATION
  Report Type: Spontaneous
  Country: US (occurrence: None)
  Receive Date: 20140306
  Receipt Date: 20140306
  Transmission Date: 20141002
  Serious: Yes (Other)
  Sender: FDA-Public Use
  Company Number: 163-21880-13042224

PATIENT
  Age: 61 Year
  Sex: Male
  Weight: 76.3 kg

DRUGS (25)
  1. REVLIMID (LENALIDOMIDE) (CAPSULES) [Suspect]
     Indication: PLASMA CELL MYELOMA
     Route: 048
     Dates: start: 20130301, end: 20130301
  2. DEXAMETHASONE (DEXAMETHASONE) (UNKNOWN) [Suspect]
     Indication: PLASMA CELL MYELOMA
     Route: 048
     Dates: start: 20130301, end: 20130301
  3. SAR650984 [Suspect]
     Indication: PLASMA CELL MYELOMA
     Route: 042
     Dates: start: 20130401, end: 20130401
  4. TYLENOL (PARACETAMOL) (UNKNOWN) [Concomitant]
  5. BENADRYL (DIPHENHYDRAMINE HYDROCHLORIDE) (UNKNOWN) [Concomitant]
  6. FAMOTIDINE (FAMOTIDINE) (UNKNOWN) [Concomitant]
  7. OXYGEN (OXYGEN) (GAS FOR INHALITION) [Concomitant]
  8. BACLOFEN (BACLOFEN) (UNKNOWN) [Concomitant]
  9. ASPIRIN (ACETYLSALICYLIC ACID) (UNKNOWN) (ACETYLSALICYLIC ACID) [Concomitant]
  10. CALCIUM (CALCIUM) (UNKNOWN) [Concomitant]
  11. FLUTICASONE (FLUTICASONE) (UNKNOWN) [Concomitant]
  12. ZOLPIDEM TARTRATE (ZOLPIDEM TARTRATE) (UNKNOWN) [Concomitant]
  13. SYMBICORT (SYMBICORT TURBUHALER ^DRACO^) (UNKNOWN) [Concomitant]
  14. VALACICLOVIR HYDROCHLORIDE (VALACICLOVIR HYDROCHLORIDE) (UNKNOWN) [Concomitant]
  15. SERBTRALINE HYDROCHLORIDE (SERTRALINE HYDROCHLORIDE) (UNKNOWN) [Concomitant]
  16. OXYCODONE HYDROCHLORIDE (OXYCODONE HYDROCHLORIDE) (UNKNOWN) [Concomitant]
  17. LORAZEPAM (LORAZEPAM) (UNKNOWN) [Concomitant]
  18. HYDROCODONE / IBUPROFEN (VICOPROFEN) (UNKNOWN) [Concomitant]
  19. FLUCONAZOLE (FLUCONAZOLE) (UNKNOWN) [Concomitant]
  20. CLARITHROMYCIN (CLARITHROMYCIN) (UNKNOWN) [Concomitant]
  21. AMOXICILLIN/CLAVULANATE POTASSIUM (UNKNOWN) [Concomitant]
  22. ALL OTHER THERAPUTIC PRODUCTS (ALL OTHER THERAPUTIC PRODUCTS) (UNKNOWN) [Concomitant]
  23. NYSTATIN (NYSTATIN) (UNKNOWN) [Concomitant]
  24. MAGIC MOUTHWASH (UNKNOWN) [Concomitant]
  25. ALBUTEROL SULFATE (SALBUTAMOL SULFATE) (UNKNOWN) [Concomitant]

REACTIONS (1)
  - Bronchospasm [None]
